FAERS Safety Report 16811271 (Version 8)
Quarter: 2020Q4

REPORT INFORMATION
  Report Type: Report from Study
  Country: FR (occurrence: FR)
  Receive Date: 20190916
  Receipt Date: 20201102
  Transmission Date: 20210113
  Serious: Yes (Death, Hospitalization, Other)
  Sender: FDA-Public Use
  Company Number: FR-INCYTE CORPORATION-2019IN009109

PATIENT

DRUGS (8)
  1. LERCANIDIPINE [Concomitant]
     Active Substance: LERCANIDIPINE
     Indication: HYPERTENSION
     Dosage: 20 MG, UNK
     Route: 048
     Dates: start: 2018
  2. INNOHEP [Concomitant]
     Active Substance: TINZAPARIN SODIUM
     Indication: ARRHYTHMIA
  3. ELIQUIS [Concomitant]
     Active Substance: APIXABAN
     Indication: TRANSIENT ISCHAEMIC ATTACK
     Dosage: 5 MG, QD
     Route: 048
     Dates: start: 2017, end: 20190621
  4. JAKAVI [Suspect]
     Active Substance: RUXOLITINIB
     Indication: POLYCYTHAEMIA VERA
     Dosage: 20 MG
     Route: 048
     Dates: start: 20190220
  5. ELIQUIS [Concomitant]
     Active Substance: APIXABAN
     Indication: ARRHYTHMIA
     Dosage: 5 MG, QD
     Route: 048
     Dates: start: 20190920, end: 20191115
  6. INNOHEP [Concomitant]
     Active Substance: TINZAPARIN SODIUM
     Indication: TRANSIENT ISCHAEMIC ATTACK
     Dosage: 0.9 ML
     Route: 058
     Dates: start: 20190621, end: 20190919
  7. FUROSEMIDE. [Concomitant]
     Active Substance: FUROSEMIDE
     Indication: HYPERTENSION
     Dosage: 20 MG, UNK
     Route: 048
     Dates: start: 201905, end: 20190715
  8. UROREC [Concomitant]
     Active Substance: SILODOSIN
     Indication: RENAL FAILURE
     Dosage: 4 MG, UNK
     Route: 048
     Dates: start: 2019

REACTIONS (19)
  - Fall [Recovered/Resolved]
  - Shock haemorrhagic [Fatal]
  - International normalised ratio decreased [Unknown]
  - Neutrophil count increased [Unknown]
  - Femur fracture [Recovered/Resolved]
  - Haemoglobin decreased [Fatal]
  - Red blood cell count decreased [Unknown]
  - Blood fibrinogen increased [Unknown]
  - White blood cell count increased [Unknown]
  - Urinary incontinence [Unknown]
  - Polycythaemia vera [Fatal]
  - Haematocrit decreased [Unknown]
  - Haematoma [Fatal]
  - Septic arthritis staphylococcal [Recovered/Resolved]
  - Blood creatinine increased [Unknown]
  - Prothrombin time shortened [Unknown]
  - Syncope [Fatal]
  - Drug ineffective [Unknown]
  - Platelet count increased [Unknown]

NARRATIVE: CASE EVENT DATE: 2019
